FAERS Safety Report 5837857-3 (Version None)
Quarter: 2008Q3

REPORT INFORMATION
  Report Type: 
  Country: None (occurrence: None)
  Receive Date: 20080808
  Receipt Date: 20080207
  Transmission Date: 20090109
  Serious: No
  Sender: FDA-Public Use
  Company Number: A0709673A

PATIENT
  Sex: Male

DRUGS (3)
  1. PAXIL CR [Suspect]
     Indication: DRUG USE FOR UNKNOWN INDICATION
     Route: 048
  2. VITAMIN TAB [Concomitant]
  3. ANTIOXIDANTS [Concomitant]

REACTIONS (2)
  - ADVERSE DRUG REACTION [None]
  - WITHDRAWAL SYNDROME [None]
